FAERS Safety Report 4613642-5 (Version None)
Quarter: 2005Q1

REPORT INFORMATION
  Report Type: 
  Country: None (occurrence: None)
  Receive Date: 20050315
  Receipt Date: 20041018
  Transmission Date: 20050727
  Serious: Yes (Other)
  Sender: FDA-Public Use
  Company Number: ENT2004-0198

PATIENT
  Age: 74 Year
  Sex: Male

DRUGS (3)
  1. STALEVO 100 [Suspect]
     Indication: PARKINSONISM
     Dosage: TID ORAL
     Route: 048
  2. COMTAN [Concomitant]
  3. MADOPAR [Concomitant]

REACTIONS (2)
  - ERYTHEMA [None]
  - HYPERTENSIVE CRISIS [None]
